FAERS Safety Report 9949136 (Version 2)
Quarter: 2014Q1

REPORT INFORMATION
  Report Type: Spontaneous
  Country: US (occurrence: US)
  Receive Date: 20140304
  Receipt Date: 20140306
  Transmission Date: 20141002
  Serious: Yes (Other)
  Sender: FDA-Public Use
  Company Number: US-PFIZER INC-2014059249

PATIENT
  Age: 65 Year
  Sex: Female
  Weight: 85.71 kg

DRUGS (13)
  1. LYRICA [Suspect]
     Indication: BACK PAIN
     Dosage: 100 MG, 3X/DAY
     Route: 048
     Dates: end: 2013
  2. LYRICA [Suspect]
     Dosage: 100MG ONCE A DAY OR 100MG TWO TIMES A DAY
     Route: 048
     Dates: start: 2013
  3. LYRICA [Suspect]
     Dosage: 100 MG, UNK
     Route: 048
  4. MORPHINE [Concomitant]
     Dosage: UNK
  5. HYDROCODONE [Concomitant]
     Dosage: UNK
  6. FLEXERIL [Concomitant]
     Dosage: UNK
  7. TENUATE [Concomitant]
     Dosage: 75 MG, UNK
  8. NEXIUM [Concomitant]
     Dosage: UNK
  9. REGLAN [Concomitant]
     Dosage: 10 MG, UNK
  10. ASPIRIN [Concomitant]
     Dosage: UNK
  11. VITAMIN C [Concomitant]
     Dosage: UNK
  12. VITAMIN D [Concomitant]
     Dosage: UNK
  13. LEVOTHYROXINE [Concomitant]
     Dosage: 88 UG, UNK

REACTIONS (4)
  - Weight increased [Unknown]
  - Body height decreased [Unknown]
  - Anaemia [Unknown]
  - Pain [Unknown]
